FAERS Safety Report 13045991 (Version 1)
Quarter: 2016Q4

REPORT INFORMATION
  Report Type: Spontaneous
  Country: GB (occurrence: GB)
  Receive Date: 20161220
  Receipt Date: 20161220
  Transmission Date: 20170207
  Serious: Yes (Hospitalization)
  Sender: FDA-Public Use
  Company Number: GB-PFIZER INC-2016583667

PATIENT
  Age: 18 Year
  Sex: Female

DRUGS (1)
  1. VIBRAMYCIN [Suspect]
     Active Substance: DOXYCYCLINE
     Dosage: 100 MG, UNK
     Dates: start: 201609

REACTIONS (3)
  - Oesophageal disorder [Unknown]
  - Wrong technique in product usage process [Unknown]
  - Dyspnoea [Unknown]
